FAERS Safety Report 7484555-9 (Version None)
Quarter: 2011Q2

REPORT INFORMATION
  Report Type: 
  Country: None (occurrence: None)
  Receive Date: 20110517
  Receipt Date: 20110509
  Transmission Date: 20111010
  Serious: No
  Sender: FDA-Public Use
  Company Number: US-BIOGENIDEC-2011BI017624

PATIENT
  Sex: Female

DRUGS (2)
  1. TYSABRI [Suspect]
     Route: 042
     Dates: end: 20050101
  2. TYSABRI [Suspect]
     Indication: MULTIPLE SCLEROSIS
     Route: 042
     Dates: start: 20100412

REACTIONS (10)
  - STRESS [None]
  - MOTOR DYSFUNCTION [None]
  - FALL [None]
  - DYSARTHRIA [None]
  - FATIGUE [None]
  - MOBILITY DECREASED [None]
  - DEPRESSION [None]
  - LIBIDO DECREASED [None]
  - GAIT DISTURBANCE [None]
  - BALANCE DISORDER [None]
